FAERS Safety Report 22108725 (Version 2)
Quarter: 2023Q1

REPORT INFORMATION
  Report Type: Spontaneous
  Country: US (occurrence: US)
  Receive Date: 20230317
  Receipt Date: 20230327
  Transmission Date: 20230417
  Serious: No
  Sender: FDA-Public Use
  Company Number: US-BRISTOL-MYERS SQUIBB COMPANY-2023-038326

PATIENT
  Age: 87 Year
  Sex: Male
  Weight: 81.6 kg

DRUGS (8)
  1. ELIQUIS [Suspect]
     Active Substance: APIXABAN
     Indication: Cerebrovascular accident prophylaxis
     Dosage: STARTED 5 YEARS AGO
  2. VYNDAMAX [Suspect]
     Active Substance: TAFAMIDIS
     Indication: Cardiac amyloidosis
     Dosage: STARTED 5 YEARS AGO
     Dates: start: 201901, end: 20230129
  3. VYNDAMAX [Suspect]
     Active Substance: TAFAMIDIS
  4. LIPITOR [Concomitant]
     Active Substance: ATORVASTATIN CALCIUM
     Indication: Blood cholesterol abnormal
     Dosage: STARTED 40 YEARS AGO
  5. CITALOPRAM [Concomitant]
     Active Substance: CITALOPRAM HYDROBROMIDE
     Indication: Depression
     Dosage: STARTED 40 YEARS AGO
  6. OMEPRAZOLE [Concomitant]
     Active Substance: OMEPRAZOLE
     Indication: Hyperchlorhydria
     Dosage: STARTED 5 YEARS AGO
     Dates: start: 2018
  7. FUROSEMIDE [Concomitant]
     Active Substance: FUROSEMIDE
     Indication: Fluid retention
     Dosage: STARTED 5 YEARS AGO
     Dates: start: 2018
  8. POTASSIUM CHLORIDE [Concomitant]
     Active Substance: POTASSIUM CHLORIDE
     Indication: Product used for unknown indication
     Dosage: STARTED 5 YEARS AGO
     Dates: start: 2018

REACTIONS (5)
  - Fatigue [Unknown]
  - Depression [Unknown]
  - Sleep disorder [Unknown]
  - Weight increased [Unknown]
  - Confusional state [Unknown]
